FAERS Safety Report 5972796-9 (Version None)
Quarter: 2008Q4

REPORT INFORMATION
  Report Type: 
  Country: None (occurrence: None)
  Receive Date: 20081201
  Receipt Date: 20081121
  Transmission Date: 20090506
  Serious: Yes (Disabling)
  Sender: FDA-Public Use
  Company Number: PR-MERCK-0805USA02800

PATIENT
  Sex: Female

DRUGS (1)
  1. FOSAMAX [Suspect]
     Route: 048
     Dates: start: 20021101, end: 20070101

REACTIONS (6)
  - BONE DISORDER [None]
  - EMOTIONAL DISORDER [None]
  - INJURY [None]
  - OSTEONECROSIS [None]
  - OVERDOSE [None]
  - TOOTH DISORDER [None]
